FAERS Safety Report 20051437 (Version 2)
Quarter: 2022Q1

REPORT INFORMATION
  Report Type: Other
  Country: CA (occurrence: CA)
  Receive Date: 20211110
  Receipt Date: 20220301
  Transmission Date: 20220423
  Serious: Yes (Hospitalization, Other)
  Sender: FDA-Public Use
  Company Number: CA-CELLTRION INC.-2021CA014985

PATIENT

DRUGS (5)
  1. RITUXIMAB [Suspect]
     Active Substance: RITUXIMAB
     Indication: Granulomatosis with polyangiitis
     Dosage: 1 GRAM
     Route: 042
  2. ALENDRONATE SODIUM [Concomitant]
     Active Substance: ALENDRONATE SODIUM
  3. PREDNISONE [Concomitant]
     Active Substance: PREDNISONE
  4. PREGABALIN [Concomitant]
     Active Substance: PREGABALIN
  5. SULFATRIM [Concomitant]
     Active Substance: SULFAMETHOXAZOLE\TRIMETHOPRIM

REACTIONS (5)
  - Cerebrovascular accident [Unknown]
  - Genital herpes [Unknown]
  - Intentional product use issue [Unknown]
  - Off label use [Unknown]
  - Overdose [Unknown]
